FAERS Safety Report 8558407-7 (Version None)
Quarter: 2012Q3

REPORT INFORMATION
  Report Type: 
  Country: None (occurrence: None)
  Receive Date: 20120801
  Receipt Date: 20120727
  Transmission Date: 20120928
  Serious: Yes (Other)
  Sender: FDA-Public Use
  Company Number: JP-ABBOTT-12P-087-0909187-00

PATIENT
  Age: 62 Year
  Sex: Male
  Weight: 44.5 kg

DRUGS (8)
  1. HUMIRA [Suspect]
     Dates: start: 20120105, end: 20120319
  2. FAMOTIDINE [Concomitant]
     Indication: GASTRIC MUCOSAL LESION
  3. LOPERAMIDE HCL [Concomitant]
     Indication: CROHN'S DISEASE
     Route: 048
     Dates: end: 20120217
  4. LOPERAMIDE HCL [Concomitant]
     Dates: start: 20120218, end: 20120309
  5. FAMOTIDINE [Concomitant]
     Indication: CROHN'S DISEASE
     Route: 048
     Dates: end: 20120309
  6. POLYCARBOPHIL CALCIUM [Concomitant]
     Indication: CROHN'S DISEASE
     Route: 048
     Dates: start: 20120214, end: 20120309
  7. HUMIRA [Suspect]
     Indication: CROHN'S DISEASE
     Route: 058
     Dates: start: 20111208, end: 20111208
  8. HUMIRA [Suspect]
     Dates: start: 20111222, end: 20111222

REACTIONS (9)
  - METABOLIC ENCEPHALOPATHY [None]
  - METABOLIC DISORDER [None]
  - MEMORY IMPAIRMENT [None]
  - DECREASED APPETITE [None]
  - DELIRIUM [None]
  - DISORIENTATION [None]
  - MALNUTRITION [None]
  - SPEECH DISORDER [None]
  - ABNORMAL BEHAVIOUR [None]
